FAERS Safety Report 16064551 (Version 1)
Quarter: 2019Q1

REPORT INFORMATION
  Report Type: Spontaneous
  Country: FR (occurrence: FR)
  Receive Date: 20190312
  Receipt Date: 20190312
  Transmission Date: 20190418
  Serious: Yes (Hospitalization)
  Sender: FDA-Public Use
  Company Number: FR-MYLANLABS-2019M1022559

PATIENT
  Age: 71 Year
  Sex: Male

DRUGS (4)
  1. DALACINE                           /00166004/ [Suspect]
     Active Substance: CLINDAMYCIN PALMITATE HYDROCHLORIDE
     Indication: ERYSIPELAS
     Dosage: 1800 MILLIGRAM, QD
     Route: 042
     Dates: start: 20160317, end: 20160321
  2. DALACINE                           /00166004/ [Suspect]
     Active Substance: CLINDAMYCIN PALMITATE HYDROCHLORIDE
     Indication: ERYSIPELAS
     Dosage: 1800 MILLIGRAM, QD
     Route: 048
     Dates: start: 20160321, end: 20160325
  3. LEVOFLOXACIN. [Suspect]
     Active Substance: LEVOFLOXACIN
     Indication: ERYSIPELAS
     Dosage: 1000 MILLIGRAM, QD
     Route: 048
     Dates: start: 20160317, end: 20160327
  4. IRBESARTAN. [Suspect]
     Active Substance: IRBESARTAN
     Indication: HYPERTENSION
     Dosage: 150 MILLIGRAM, QD
     Route: 048
     Dates: start: 20160317, end: 20160325

REACTIONS (1)
  - Rash [Recovered/Resolved]

NARRATIVE: CASE EVENT DATE: 20160326
